FAERS Safety Report 7707022-3 (Version None)
Quarter: 2011Q3

REPORT INFORMATION
  Report Type: 
  Country: None (occurrence: None)
  Receive Date: 20110824
  Receipt Date: 20110817
  Transmission Date: 20111222
  Serious: No
  Sender: FDA-Public Use
  Company Number: US-PFIZER INC-2011190502

PATIENT
  Sex: Male
  Weight: 97.506 kg

DRUGS (8)
  1. ADALIMUMAB [Suspect]
     Indication: RHEUMATOID ARTHRITIS
     Dosage: 40 MG/ 0.8 ML PRE-FILLED SYRINGE (1 IN 2 WK)
     Dates: start: 20080101
  2. LOSARTAN POTASSIUM [Concomitant]
     Indication: HYPERTENSION
     Dosage: UNK
  3. FOLIC ACID [Concomitant]
     Indication: VITAMIN SUPPLEMENTATION
     Dosage: UNK
  4. ETACRYNIC ACID [Concomitant]
     Indication: DIURETIC THERAPY
     Dosage: UNK
  5. NORVASC [Suspect]
     Indication: HYPERTENSION
     Dosage: UNK
     Dates: start: 20080101, end: 20110706
  6. METHOTREXATE [Concomitant]
     Indication: RHEUMATOID ARTHRITIS
     Dosage: UNK
  7. ATORVASTATIN CALCIUM [Concomitant]
     Indication: HYPERLIPIDAEMIA
     Dosage: UNK
  8. ALLOPURINOL [Concomitant]
     Indication: GOUT
     Dosage: UNK

REACTIONS (3)
  - OEDEMA PERIPHERAL [None]
  - OEDEMA [None]
  - JOINT SWELLING [None]
